FAERS Safety Report 9007323 (Version 2)
Quarter: 2013Q3

REPORT INFORMATION
  Report Type: Spontaneous
  Country: US (occurrence: US)
  Receive Date: 20130110
  Receipt Date: 20130823
  Transmission Date: 20140515
  Serious: Yes (Life-Threatening, Other)
  Sender: FDA-Public Use
  Company Number: CHPA2013US000672

PATIENT
  Age: 63 Year
  Sex: Female

DRUGS (5)
  1. BENEFIBER W/ WHEAT DEXTRIN [Suspect]
     Indication: IRRITABLE BOWEL SYNDROME
     Dosage: 2 TSP, QD
     Route: 048
     Dates: start: 2002
  2. GAS-X EXTSTR CHEW TABS PEPPERMINT CREME [Suspect]
     Indication: FLATULENCE
     Dosage: 250 MG, QID
     Route: 048
     Dates: start: 1990, end: 1994
  3. GADOLINIUM [Concomitant]
     Indication: ABDOMINAL X-RAY
     Dosage: UNK, UNK
     Route: 042
     Dates: start: 2010, end: 2010
  4. PHAZYME [Concomitant]
     Indication: FLATULENCE
     Dosage: UNK, UNK
     Dates: start: 1994
  5. BEANO [Concomitant]
     Indication: FLATULENCE
     Dosage: UNK, UNK
     Route: 048
     Dates: start: 1994

REACTIONS (4)
  - Apparent death [Recovered/Resolved]
  - Contrast media reaction [Recovered/Resolved]
  - Hepatic cirrhosis [Not Recovered/Not Resolved]
  - Pancreatitis [Recovered/Resolved]
